FAERS Safety Report 7272274-3 (Version None)
Quarter: 2011Q1

REPORT INFORMATION
  Report Type: 
  Country: None (occurrence: None)
  Receive Date: 20110131
  Receipt Date: 20110131
  Transmission Date: 20110831
  Serious: Yes (Other)
  Sender: FDA-Public Use
  Company Number: None

PATIENT
  Age: 47 Year
  Sex: Male
  Weight: 83.9154 kg

DRUGS (1)
  1. LEXAPRO [Suspect]
     Dosage: ONE A DAY
     Dates: start: 20100901, end: 20110124

REACTIONS (7)
  - DRUG INEFFECTIVE [None]
  - DYSPNOEA [None]
  - INFLUENZA LIKE ILLNESS [None]
  - ASTHMA [None]
  - HYPERHIDROSIS [None]
  - FEELING ABNORMAL [None]
  - HEAD BANGING [None]
